FAERS Safety Report 11147691 (Version 1)
Quarter: 2015Q2

REPORT INFORMATION
  Report Type: Spontaneous
  Country: None (occurrence: KR)
  Receive Date: 20150529
  Receipt Date: 20150529
  Transmission Date: 20150821
  Serious: Yes (Other)
  Sender: FDA-Public Use
  Company Number: KR-HOSPIRA-2883327

PATIENT
  Age: 77 Year
  Sex: Male

DRUGS (3)
  1. CISPLATIN. [Suspect]
     Active Substance: CISPLATIN
     Indication: HEPATOCELLULAR CARCINOMA
     Route: 013
  2. FLUOROURACIL. [Suspect]
     Active Substance: FLUOROURACIL
     Indication: HEPATOCELLULAR CARCINOMA
     Route: 041
  3. EPIRUBICIN HYDROCHLORIDE. [Suspect]
     Active Substance: EPIRUBICIN HYDROCHLORIDE
     Indication: HEPATOCELLULAR CARCINOMA
     Route: 013

REACTIONS (1)
  - Hepatitis B [Recovered/Resolved]
